FAERS Safety Report 9452286 (Version 2)
Quarter: 2013Q3

REPORT INFORMATION
  Report Type: Spontaneous
  Country: US (occurrence: US)
  Receive Date: 20130812
  Receipt Date: 20130912
  Transmission Date: 20140515
  Serious: Yes (Other)
  Sender: FDA-Public Use
  Company Number: US-THROMBOGENICS INC-JET-2013-224

PATIENT
  Sex: 0

DRUGS (1)
  1. JETREA [Suspect]
     Indication: VITREOUS ADHESIONS
     Dosage: 0.125 MG, ONE TIME DOSE
     Route: 031
     Dates: start: 20130603, end: 20130603

REACTIONS (1)
  - Retinal injury [Recovered/Resolved]
